FAERS Safety Report 13075713 (Version 1)
Quarter: 2016Q4

REPORT INFORMATION
  Report Type: Spontaneous
  Country: US (occurrence: US)
  Receive Date: 20161230
  Receipt Date: 20161230
  Transmission Date: 20170207
  Serious: No
  Sender: FDA-Public Use
  Company Number: US-009507513-1612USA014649

PATIENT
  Age: 71 Year
  Sex: Female

DRUGS (1)
  1. HEXADROL [Suspect]
     Active Substance: DEXAMETHASONE
     Dosage: 0.3 TO 0.5 ML OF 10MG/ML, TWO INJECTIONS
     Route: 050

REACTIONS (1)
  - Tympanic membrane perforation [Unknown]
